FAERS Safety Report 9276496 (Version 1)
Quarter: 2012Q4

REPORT INFORMATION
  Report Type: Spontaneous
  Country: FR (occurrence: None)
  Receive Date: 20121109
  Receipt Date: 20121109
  Transmission Date: 20130627
  Serious: Yes (Other)
  Sender: FDA-Public Use
  Company Number: 2011S1000947

PATIENT
  Age: 2 Year
  Sex: Male
  Weight: 10.5 kg

DRUGS (9)
  1. CUBICIN [Suspect]
     Indication: DRUG USE FOR UNKNOWN INDICATION
     Dosage: 120 MG ; UNK ; UNK
     Dates: start: 20111221
  2. MORPHINE [Concomitant]
  3. DOLIPRANE [Concomitant]
  4. HYPNOVEL [Concomitant]
     Dates: start: 20111221
  5. LAROXYL [Concomitant]
  6. DEPAKENE [Concomitant]
  7. SOLUPRED [Concomitant]
  8. ESOMEPRAZOLE [Concomitant]
  9. SACCHAROMYCES BOULARD I I [Concomitant]

REACTIONS (7)
  - Oedema peripheral [None]
  - Condition aggravated [None]
  - Localised oedema [None]
  - Periorbital oedema [None]
  - Respiratory rate increased [None]
  - Tachycardia [None]
  - Gastrointestinal sounds abnormal [None]
